FAERS Safety Report 6083672-8 (Version None)
Quarter: 2009Q1

REPORT INFORMATION
  Report Type: 
  Country: None (occurrence: None)
  Receive Date: 20090219
  Receipt Date: 20090212
  Transmission Date: 20090719
  Serious: Yes (Hospitalization)
  Sender: FDA-Public Use
  Company Number: DE-AMGEN-UK298479

PATIENT
  Sex: Male
  Weight: 105 kg

DRUGS (6)
  1. VECTIBIX [Suspect]
     Indication: COLORECTAL CANCER
     Route: 042
     Dates: start: 20080528, end: 20080528
  2. SODIUM CHLORIDE [Concomitant]
     Route: 042
     Dates: start: 20080528, end: 20080528
  3. BISOPROLOL [Concomitant]
     Route: 048
  4. NEXIUM [Concomitant]
     Route: 048
  5. RAMIPRIL [Concomitant]
     Route: 048
  6. HYDROCHLOROTHIAZIDE [Concomitant]
     Route: 048

REACTIONS (2)
  - CHOLANGITIS SUPPURATIVE [None]
  - MUSCLE ABSCESS [None]
